FAERS Safety Report 18064681 (Version 2)
Quarter: 2020Q3

REPORT INFORMATION
  Report Type: Spontaneous
  Country: US (occurrence: US)
  Receive Date: 20200724
  Receipt Date: 20200910
  Transmission Date: 20201103
  Serious: No
  Sender: FDA-Public Use
  Company Number: US-TEVA-2020-US-1804273

PATIENT
  Age: 72 Year
  Sex: Male

DRUGS (1)
  1. MONTELUKAST SODIUM. [Suspect]
     Active Substance: MONTELUKAST SODIUM
     Indication: DYSPNOEA
     Dosage: DOSE: SPLITTING THE 10 MG DOSE IN TWO HALVES AND TAKING ONE HALF TWICE PER DAY
     Route: 065
     Dates: start: 202005

REACTIONS (9)
  - Wrong technique in product usage process [Unknown]
  - Drug ineffective [Unknown]
  - Paraesthesia [Recovered/Resolved]
  - Secretion discharge [Not Recovered/Not Resolved]
  - Inappropriate schedule of product administration [Unknown]
  - Incorrect dose administered [Unknown]
  - Muscle spasms [Recovered/Resolved]
  - Nasal congestion [Not Recovered/Not Resolved]
  - Sinusitis [Unknown]

NARRATIVE: CASE EVENT DATE: 2020
